FAERS Safety Report 6871630-2 (Version None)
Quarter: 2010Q3

REPORT INFORMATION
  Report Type: 
  Country: None (occurrence: None)
  Receive Date: 20100723
  Receipt Date: 20100712
  Transmission Date: 20110219
  Serious: Yes (Hospitalization, Disabling, Other)
  Sender: FDA-Public Use
  Company Number: US-PFIZER INC-2010019280

PATIENT
  Sex: Male

DRUGS (4)
  1. CHANTIX [Suspect]
     Indication: SMOKING CESSATION THERAPY
     Dosage: UNK
     Route: 048
     Dates: start: 20070105, end: 20070901
  2. TRAZODONE [Concomitant]
     Indication: SLEEP DISORDER
     Dosage: UNK
     Dates: start: 20060101, end: 20080101
  3. TRAZODONE [Concomitant]
     Indication: INSOMNIA
  4. TRICOR [Concomitant]
     Indication: BLOOD CHOLESTEROL INCREASED
     Dosage: UNK
     Dates: start: 20060101, end: 20080101

REACTIONS (23)
  - ABNORMAL DREAMS [None]
  - AGGRESSION [None]
  - AMNESIA [None]
  - ANGER [None]
  - ANXIETY [None]
  - BIPOLAR DISORDER [None]
  - CHEST PAIN [None]
  - CONVULSION [None]
  - DELUSION [None]
  - DEPRESSION [None]
  - DIABETIC COMPLICATION [None]
  - HALLUCINATION [None]
  - INSOMNIA [None]
  - INTENTIONAL OVERDOSE [None]
  - LOSS OF CONSCIOUSNESS [None]
  - MENTAL DISORDER [None]
  - MUSCLE SPASMS [None]
  - NIGHTMARE [None]
  - PARANOIA [None]
  - POST-TRAUMATIC STRESS DISORDER [None]
  - PSYCHOTIC DISORDER [None]
  - RESTLESSNESS [None]
  - SUICIDE ATTEMPT [None]
